FAERS Safety Report 4823280-7 (Version None)
Quarter: 2005Q4

REPORT INFORMATION
  Report Type: 
  Country: None (occurrence: None)
  Receive Date: 20051107
  Receipt Date: 20051024
  Transmission Date: 20060501
  Serious: Yes (Other)
  Sender: FDA-Public Use
  Company Number: 2005147672

PATIENT
  Age: 47 Year
  Sex: Male
  Weight: 72 kg

DRUGS (18)
  1. LYRICA [Suspect]
     Indication: NEURALGIA
     Dosage: 150 MG (75 MG, 2 IN 1 D), ORAL
     Route: 048
     Dates: start: 20051006, end: 20051010
  2. ATORVASTATIN CALCIUM [Concomitant]
  3. BECLOMETHASONE DIPROPIONATE [Concomitant]
  4. CARBAMAZEPINE [Concomitant]
  5. CORSODYL               (CHLORHEXIDINE GLUCONATE) [Concomitant]
  6. CYCLIZINE              (CYCLIZINE) [Concomitant]
  7. DIAZEPAM [Concomitant]
  8. DOSULEPIN            (DOSULEPIN) [Concomitant]
  9. HYDROXYZINE HCL [Concomitant]
  10. INSULIN GLARGINE               (INSULIN GLARGINE) [Concomitant]
  11. METHADONE HCL [Concomitant]
  12. NOVORAPID          (INSULIN ASPART) [Concomitant]
  13. PROCHLORPERAZINE MALEATE          (PROCHLORPERAZINE MALEATE) [Concomitant]
  14. ALBUTEROL [Concomitant]
  15. TERBINAFINE HCL [Concomitant]
  16. TRAMADOL HCL [Concomitant]
  17. DIHYDROCODEINE                 (DIHYDROCODEINE) [Concomitant]
  18. VITAMINS             (VITAMINS) [Concomitant]

REACTIONS (2)
  - COORDINATION ABNORMAL [None]
  - SPEECH DISORDER [None]
